FAERS Safety Report 15806295 (Version 1)
Quarter: 2019Q1

REPORT INFORMATION
  Report Type: Spontaneous
  Country: US (occurrence: US)
  Receive Date: 20190109
  Receipt Date: 20190109
  Transmission Date: 20190417
  Serious: Yes (Other)
  Sender: FDA-Public Use
  Company Number: None

PATIENT
  Age: 48 Year
  Sex: Female
  Weight: 58.5 kg

DRUGS (2)
  1. ZETIA [Suspect]
     Active Substance: EZETIMIBE
  2. ROSUVASTATIN CALCIUM. [Suspect]
     Active Substance: ROSUVASTATIN CALCIUM
     Indication: BLOOD CHOLESTEROL INCREASED
     Dosage: ?          QUANTITY:1 TABLET(S);?
     Route: 048
     Dates: start: 20181207, end: 20181222

REACTIONS (5)
  - Myalgia [None]
  - Pain [None]
  - Feeling abnormal [None]
  - Arthralgia [None]
  - Migraine [None]

NARRATIVE: CASE EVENT DATE: 20181226
